FAERS Safety Report 8386983-6 (Version None)
Quarter: 2012Q2

REPORT INFORMATION
  Report Type: 
  Country: None (occurrence: None)
  Receive Date: 20120525
  Receipt Date: 20120516
  Transmission Date: 20120825
  Serious: Yes (Hospitalization)
  Sender: FDA-Public Use
  Company Number: JP-ASTRAZENECA-2012SE33022

PATIENT
  Age: 75 Year
  Sex: Female

DRUGS (4)
  1. CANDESARTAN CILEXETIL [Suspect]
     Indication: HYPERTENSION
     Route: 048
     Dates: start: 20051028, end: 20060608
  2. CANDESARTAN CILEXETIL [Suspect]
     Route: 048
     Dates: start: 20090804, end: 20101030
  3. OMEPRAZOLE [Concomitant]
     Indication: GASTROOESOPHAGEAL REFLUX DISEASE
     Route: 048
     Dates: start: 20041109, end: 20050106
  4. OMEPRAZOLE [Concomitant]
     Route: 048
     Dates: start: 20060228

REACTIONS (1)
  - MYELODYSPLASTIC SYNDROME [None]
